FAERS Safety Report 14497809 (Version 2)
Quarter: 2018Q1

REPORT INFORMATION
  Report Type: Spontaneous
  Country: AT (occurrence: AT)
  Receive Date: 20180207
  Receipt Date: 20180315
  Transmission Date: 20180509
  Serious: Yes (Hospitalization)
  Sender: FDA-Public Use
  Company Number: AT-BAYER-2018-017881

PATIENT
  Age: 76 Year
  Sex: Male

DRUGS (11)
  1. CALCIDURAN [Concomitant]
  2. XOFIGO [Suspect]
     Active Substance: RADIUM RA-223 DICHLORIDE
     Dosage: UNK
  3. XOFIGO [Suspect]
     Active Substance: RADIUM RA-223 DICHLORIDE
     Dosage: UNK
  4. XOFIGO [Suspect]
     Active Substance: RADIUM RA-223 DICHLORIDE
     Dosage: UNK
  5. XGEVA [Concomitant]
     Active Substance: DENOSUMAB
  6. XOFIGO [Suspect]
     Active Substance: RADIUM RA-223 DICHLORIDE
     Dosage: UNK
  7. XTANDI [Concomitant]
     Active Substance: ENZALUTAMIDE
  8. XOFIGO [Suspect]
     Active Substance: RADIUM RA-223 DICHLORIDE
     Dosage: UNK
  9. XOFIGO [Suspect]
     Active Substance: RADIUM RA-223 DICHLORIDE
     Dosage: UNK
  10. PLAVIX [Concomitant]
     Active Substance: CLOPIDOGREL BISULFATE
  11. TRENANTONE [Concomitant]
     Active Substance: LEUPROLIDE ACETATE

REACTIONS (1)
  - Bone marrow disorder [Unknown]

NARRATIVE: CASE EVENT DATE: 201710
